FAERS Safety Report 5135268-X (Version None)
Quarter: 2006Q4

REPORT INFORMATION
  Report Type: 
  Country: None (occurrence: None)
  Receive Date: 20061024
  Receipt Date: 20061024
  Transmission Date: 20070319
  Serious: Yes (Life-Threatening, Hospitalization, Disabling)
  Sender: FDA-Public Use
  Company Number: None

PATIENT
  Age: 54 Year
  Sex: Male
  Weight: 90.7194 kg

DRUGS (3)
  1. CORDIS CYPHER STENT SIROLIMUS-ELUTINGCORDIS-JOHNSON+JOHN [Suspect]
     Indication: CAROTID ARTERY OCCLUSION
     Dates: start: 20060315, end: 20060325
  2. CORDIS CYPHER STENT SIROLIMUS-ELUTINGCORDIS-JOHNSON+JOHN [Suspect]
     Indication: STENT-GRAFT MATERIAL FAILURE
     Dates: start: 20060315, end: 20060325
  3. CORDIS CYPHER STENT SIROLIMUS-ELUTINGCORDIS-JOHNSON+JOHN [Suspect]

REACTIONS (5)
  - CHEST PAIN [None]
  - CORONARY ARTERY REOCCLUSION [None]
  - POST PROCEDURAL COMPLICATION [None]
  - STENT OCCLUSION [None]
  - STENT-GRAFT MATERIAL FAILURE [None]
